FAERS Safety Report 8866155 (Version 3)
Quarter: 2013Q1

REPORT INFORMATION
  Report Type: Report from Study
  Country: DE (occurrence: DE)
  Receive Date: 20121025
  Receipt Date: 20130327
  Transmission Date: 20140127
  Serious: Yes (Hospitalization)
  Sender: FDA-Public Use
  Company Number: DE-ROCHE-1147757

PATIENT
  Age: 68 Year
  Sex: Male
  Weight: 70 kg

DRUGS (9)
  1. RITUXIMAB [Suspect]
     Indication: RHEUMATOID ARTHRITIS
     Dosage: DATE OF LAST DOSE PRIOR TO SAE WAS ON 20/DEC/2011
     Route: 042
     Dates: start: 20110616
  2. PREDNISOLON [Concomitant]
     Indication: RHEUMATOID ARTHRITIS
     Route: 048
  3. METHOTREXAT [Concomitant]
     Indication: RHEUMATOID ARTHRITIS
     Route: 065
  4. FOLSAN [Concomitant]
     Route: 065
  5. LISINOPRIL [Concomitant]
  6. PANTOZOL [Concomitant]
  7. VALORON [Concomitant]
  8. TAMSULOSIN [Concomitant]
  9. MICTONORM [Concomitant]

REACTIONS (1)
  - Prostate cancer [Recovered/Resolved]
